FAERS Safety Report 7620340-2 (Version None)
Quarter: 2011Q3

REPORT INFORMATION
  Report Type: 
  Country: None (occurrence: None)
  Receive Date: 20110719
  Receipt Date: 20110715
  Transmission Date: 20111222
  Serious: Yes (Death, Hospitalization)
  Sender: FDA-Public Use
  Company Number: PHHY2011AU54016

PATIENT
  Sex: Male

DRUGS (1)
  1. CLOZAPINE [Suspect]
     Dosage: 250 MG
     Dates: start: 20000706

REACTIONS (2)
  - DEATH [None]
  - HYPONATRAEMIA [None]
